FAERS Safety Report 25492002 (Version 1)
Quarter: 2025Q2

REPORT INFORMATION
  Report Type: Spontaneous
  Country: PL (occurrence: PL)
  Receive Date: 20250630
  Receipt Date: 20250630
  Transmission Date: 20250716
  Serious: Yes (Other)
  Sender: MERCK SHARP & DOHME LLC
  Company Number: None

PATIENT
  Age: 1 Year
  Sex: Female

DRUGS (3)
  1. M-M-RVAXPRO [Suspect]
     Active Substance: MEASLES VIRUS STRAIN ENDERS^ ATTENUATED EDMONSTON LIVE ANTIGEN\MUMPS VIRUS STRAIN B LEVEL JERYL LYNN
     Indication: Immunisation
     Route: 030
     Dates: start: 20240626, end: 20240626
  2. SYNFLORIX [Suspect]
     Active Substance: PNEUMOCOCCAL VACCINE POLYVALENT
     Indication: Immunisation
     Route: 030
     Dates: start: 20240626
  3. STERILE DILUENT (WATER) [Suspect]
     Active Substance: WATER
     Indication: Immunisation
     Dates: start: 20240626, end: 20240626

REACTIONS (5)
  - Pyrexia [Recovered/Resolved]
  - Inflammatory marker increased [Recovered/Resolved]
  - Diarrhoea [Recovered/Resolved]
  - Pharyngeal erythema [Recovered/Resolved]
  - Vomiting [Recovered/Resolved]

NARRATIVE: CASE EVENT DATE: 20240627
